FAERS Safety Report 20571730 (Version 1)
Quarter: 2022Q1

REPORT INFORMATION
  Report Type: Report from Study
  Country: US (occurrence: US)
  Receive Date: 20220309
  Receipt Date: 20220309
  Transmission Date: 20220423
  Serious: Yes (Other)
  Sender: FDA-Public Use
  Company Number: US-HLS-202200252

PATIENT

DRUGS (1)
  1. CLOZAPINE [Suspect]
     Active Substance: CLOZAPINE
     Indication: Product used for unknown indication
     Dosage: 100 MG DAILY AND 150 MG TABLET
     Route: 065

REACTIONS (3)
  - Bipolar disorder [Unknown]
  - Delusion [Unknown]
  - Schizophrenia [Unknown]
